FAERS Safety Report 5392899-X (Version None)
Quarter: 2007Q3

REPORT INFORMATION
  Report Type: 
  Country: None (occurrence: None)
  Receive Date: 20070721
  Receipt Date: 20070711
  Transmission Date: 20080115
  Serious: Yes (Other)
  Sender: FDA-Public Use
  Company Number: GB-PFIZER INC-2007058563

PATIENT
  Sex: Female

DRUGS (3)
  1. CARDURA [Suspect]
     Indication: BLOOD PRESSURE
  2. CARDIOVASCULAR SYSTEM DRUGS [Concomitant]
  3. DIURETICS [Concomitant]

REACTIONS (4)
  - BLOOD PRESSURE ABNORMAL [None]
  - CONSTIPATION [None]
  - DIZZINESS [None]
  - MEDICATION RESIDUE [None]
